FAERS Safety Report 5598300-5 (Version None)
Quarter: 2008Q1

REPORT INFORMATION
  Report Type: 
  Country: None (occurrence: None)
  Receive Date: 20080122
  Receipt Date: 20071127
  Transmission Date: 20080703
  Serious: Yes (Hospitalization, Other)
  Sender: FDA-Public Use
  Company Number: IT-BAYER-200810226GPV

PATIENT
  Age: 5 Year
  Sex: Male

DRUGS (1)
  1. ASPIRIN [Suspect]
     Indication: JUVENILE ARTHRITIS
     Route: 065

REACTIONS (1)
  - HAEMOLYTIC ANAEMIA [None]
